FAERS Safety Report 9774569 (Version 1)
Quarter: 2013Q4

REPORT INFORMATION
  Report Type: Spontaneous
  Country: IT (occurrence: IT)
  Receive Date: 20131220
  Receipt Date: 20131220
  Transmission Date: 20140711
  Serious: Yes (Other)
  Sender: FDA-Public Use
  Company Number: IT-TEVA-449548ISR

PATIENT
  Age: 53 Year
  Sex: Female
  Weight: 83 kg

DRUGS (2)
  1. FLUOROURACIL [Suspect]
     Indication: RECTOSIGMOID CANCER
     Dosage: 6230 MILLIGRAM DAILY;
     Route: 042
     Dates: start: 20130902, end: 20131120
  2. OXALIPLATINO HOSPIRA [Suspect]
     Indication: RECTOSIGMOID CANCER
     Dosage: 155 MILLIGRAM DAILY;
     Route: 042
     Dates: start: 20130902, end: 20131118

REACTIONS (3)
  - Neutropenia [Recovered/Resolved]
  - Asthenia [Recovered/Resolved]
  - Diarrhoea [Recovered/Resolved]
